FAERS Safety Report 16842712 (Version 1)
Quarter: 2019Q3

REPORT INFORMATION
  Report Type: Spontaneous
  Country: US (occurrence: US)
  Receive Date: 20190924
  Receipt Date: 20190924
  Transmission Date: 20191005
  Serious: Yes (Hospitalization, Other)
  Sender: FDA-Public Use
  Company Number: US-BEH-2019107027

PATIENT
  Age: 69 Year
  Sex: Male
  Weight: 145.13 kg

DRUGS (2)
  1. HUMATE-P [Suspect]
     Active Substance: HUMAN COAGULATION FACTOR VIII/VON WILLEBRAND FACTOR COMPLEX
     Dosage: 5000 INTERNATIONAL UNIT
     Route: 042
  2. HUMATE-P [Suspect]
     Active Substance: HUMAN COAGULATION FACTOR VIII/VON WILLEBRAND FACTOR COMPLEX
     Dosage: 5000 INTERNATIONAL UNIT
     Route: 042

REACTIONS (3)
  - Internal haemorrhage [Unknown]
  - Drug ineffective [Unknown]
  - Drug resistance [Unknown]
